FAERS Safety Report 12621496 (Version 3)
Quarter: 2016Q3

REPORT INFORMATION
  Report Type: Spontaneous
  Country: US (occurrence: US)
  Receive Date: 20160804
  Receipt Date: 20160808
  Transmission Date: 20161109
  Serious: No
  Sender: FDA-Public Use
  Company Number: US-BEH-2016058687

PATIENT
  Sex: Female
  Weight: 67 kg

DRUGS (28)
  1. COENZYME Q10 [Concomitant]
     Active Substance: UBIDECARENONE
  2. TOPROL XL [Concomitant]
     Active Substance: METOPROLOL SUCCINATE
  3. VITAMIN D3 [Concomitant]
     Active Substance: CHOLECALCIFEROL
  4. SPIRONOLACTONE. [Concomitant]
     Active Substance: SPIRONOLACTONE
  5. DIPHENHYDRAMINE. [Concomitant]
     Active Substance: DIPHENHYDRAMINE
  6. METAXALONE. [Concomitant]
     Active Substance: METAXALONE
  7. MUCINEX ER [Concomitant]
  8. LIDOCAINE/PRILOCAINE [Concomitant]
     Active Substance: LIDOCAINE\PRILOCAINE
  9. CYCLOBENZAPRINE [Concomitant]
     Active Substance: CYCLOBENZAPRINE
  10. BIOTIN [Concomitant]
     Active Substance: BIOTIN
  11. LUMIGAN [Concomitant]
     Active Substance: BIMATOPROST
  12. ALKA-SELTZER [Concomitant]
     Active Substance: ANHYDROUS CITRIC ACID\ASPIRIN\SODIUM BICARBONATE
  13. SYMBICORT [Concomitant]
     Active Substance: BUDESONIDE\FORMOTEROL FUMARATE DIHYDRATE
  14. PROAIR HFA [Concomitant]
     Active Substance: ALBUTEROL SULFATE
  15. EPIPEN [Concomitant]
     Active Substance: EPINEPHRINE
  16. PROTONIX [Concomitant]
     Active Substance: PANTOPRAZOLE SODIUM
  17. CYMBALTA [Concomitant]
     Active Substance: DULOXETINE HYDROCHLORIDE
  18. HIZENTRA [Suspect]
     Active Substance: HUMAN IMMUNOGLOBULIN G
     Indication: IMMUNODEFICIENCY COMMON VARIABLE
     Route: 058
  19. FLONASE [Concomitant]
     Active Substance: FLUTICASONE PROPIONATE
  20. PRIMIDONE. [Concomitant]
     Active Substance: PRIMIDONE
  21. FISH OIL [Concomitant]
     Active Substance: FISH OIL
  22. ZETIA [Concomitant]
     Active Substance: EZETIMIBE
  23. LISINOPRIL. [Concomitant]
     Active Substance: LISINOPRIL
  24. FUROSEMIDE. [Concomitant]
     Active Substance: FUROSEMIDE
  25. SYMBICORT [Concomitant]
     Active Substance: BUDESONIDE\FORMOTEROL FUMARATE DIHYDRATE
  26. LIDOCAINE. [Concomitant]
     Active Substance: LIDOCAINE
  27. RESTASIS [Concomitant]
     Active Substance: CYCLOSPORINE
  28. ZAFIRLUKAST. [Concomitant]
     Active Substance: ZAFIRLUKAST

REACTIONS (3)
  - Temporomandibular joint syndrome [Unknown]
  - Ear pain [Unknown]
  - Ear infection [Unknown]
